FAERS Safety Report 4798303-4 (Version None)
Quarter: 2005Q4

REPORT INFORMATION
  Report Type: 
  Country: None (occurrence: None)
  Receive Date: 20051014
  Receipt Date: 20050927
  Transmission Date: 20060501
  Serious: Yes (Other)
  Sender: FDA-Public Use
  Company Number: 2005UW14500

PATIENT
  Age: 30486 Day
  Sex: Female

DRUGS (9)
  1. XYLOCAINE [Suspect]
     Indication: CATARACT OPERATION
     Route: 031
     Dates: start: 20050927, end: 20050927
  2. ZESTRIL [Concomitant]
     Route: 048
  3. DYAZIDE [Concomitant]
  4. SYNTHROID [Concomitant]
  5. SINGULAIR [Concomitant]
  6. IRON [Concomitant]
  7. ADVAIR DISKUS 100/50 [Concomitant]
  8. PROCRIT [Concomitant]
  9. VERSED [Concomitant]
     Dates: start: 20050927, end: 20050927

REACTIONS (2)
  - FOREIGN BODY IN EYE [None]
  - PHARMACEUTICAL PRODUCT COMPLAINT [None]
